FAERS Safety Report 6049511-6 (Version None)
Quarter: 2009Q1

REPORT INFORMATION
  Report Type: 
  Country: None (occurrence: None)
  Receive Date: 20090121
  Receipt Date: 20090109
  Transmission Date: 20090719
  Serious: Yes (Congenital Anomaly)
  Sender: FDA-Public Use
  Company Number: TUK2008A00122

PATIENT

DRUGS (8)
  1. ACTOS [Suspect]
     Dosage: 30 MG (30 MG)
  2. SIMVASTATIN [Suspect]
  3. ASPIRIN [Suspect]
  4. RAMIPRIL [Suspect]
  5. METFORMIN HCL [Concomitant]
  6. NOVOLOG [Concomitant]
  7. INSULATARD NPH HUMAN [Concomitant]
  8. METHYLDOPA [Concomitant]

REACTIONS (7)
  - CAESAREAN SECTION [None]
  - CLEFT PALATE [None]
  - DYSPHAGIA [None]
  - FEEDING DISORDER NEONATAL [None]
  - MATERNAL DRUGS AFFECTING FOETUS [None]
  - PIERRE ROBIN SYNDROME [None]
  - SMALL FOR DATES BABY [None]
